FAERS Safety Report 21789040 (Version 1)
Quarter: 2022Q4

REPORT INFORMATION
  Report Type: Spontaneous
  Country: ES (occurrence: ES)
  Receive Date: 20221228
  Receipt Date: 20221228
  Transmission Date: 20230112
  Serious: Yes (Hospitalization)
  Sender: FDA-Public Use
  Company Number: ES-TASMAN PHARMA, INC.-2022TSM01226

PATIENT
  Age: 33 Year
  Sex: Male

DRUGS (1)
  1. CLOZAPINE [Suspect]
     Active Substance: CLOZAPINE
     Dosage: 250 MG, 1X/DAY ^UP TO^
     Route: 065

REACTIONS (2)
  - Pneumonitis [Recovered/Resolved]
  - Toxicity to various agents [Recovered/Resolved]
